FAERS Safety Report 8721885 (Version 27)
Quarter: 2016Q1

REPORT INFORMATION
  Report Type: Report from Study
  Country: CA (occurrence: CA)
  Receive Date: 20120814
  Receipt Date: 20160127
  Transmission Date: 20160526
  Serious: Yes (Hospitalization, Other)
  Sender: FDA-Public Use
  Company Number: PHHY2012CA027438

PATIENT
  Age: 54 Year
  Sex: Female

DRUGS (7)
  1. SANDOSTATIN LAR DEPOT [Interacting]
     Active Substance: OCTREOTIDE ACETATE
     Dosage: 30 MG, EVERY 4 WEEKS
     Route: 030
     Dates: end: 20151222
  2. SANDOSTATIN LAR DEPOT [Interacting]
     Active Substance: OCTREOTIDE ACETATE
     Dosage: 30 MG, QMO (EVERY 4 WEEKS)
     Route: 030
  3. SANDOSTATIN LAR DEPOT [Interacting]
     Active Substance: OCTREOTIDE ACETATE
     Indication: NEUROENDOCRINE TUMOUR
     Dosage: 30 MG, QMO (ONCE A MONTHS)
     Route: 030
     Dates: start: 20110907
  4. SANDOSTATIN LAR DEPOT [Interacting]
     Active Substance: OCTREOTIDE ACETATE
     Dosage: 60 MG, QMO (EVERY 4 WEEKS)
     Route: 030
  5. SANDOSTATIN [Suspect]
     Active Substance: OCTREOTIDE ACETATE
     Indication: NEUROENDOCRINE TUMOUR
     Dosage: UNK UG, BID
     Route: 058
     Dates: start: 20110825, end: 201109
  6. CLOBAZAM [Concomitant]
     Active Substance: CLOBAZAM
     Indication: PRODUCT USED FOR UNKNOWN INDICATION
     Dosage: UNK
     Route: 065
  7. DILANTIN [Interacting]
     Active Substance: PHENYTOIN
     Indication: PARTIAL SEIZURES
     Route: 065

REACTIONS (34)
  - Fall [Unknown]
  - Blood pressure increased [Unknown]
  - Generalised tonic-clonic seizure [Unknown]
  - Illusion [Recovered/Resolved]
  - Paraesthesia [Unknown]
  - Gait disturbance [Unknown]
  - Neoplasm [Unknown]
  - Drug interaction [Unknown]
  - Hand fracture [Unknown]
  - Partial seizures [Recovered/Resolved]
  - Radiation necrosis [Unknown]
  - Blood pressure diastolic increased [Unknown]
  - Urinary tract infection [Unknown]
  - Flushing [Unknown]
  - Slow speech [Unknown]
  - Seizure [Unknown]
  - Malignant neoplasm progression [Unknown]
  - Metastases to lung [Unknown]
  - Infection [Unknown]
  - Dysarthria [Unknown]
  - Spinal fracture [Unknown]
  - Metastases to pancreas [Unknown]
  - Hypoaesthesia [Unknown]
  - General physical health deterioration [Unknown]
  - Dyskinesia [Unknown]
  - Brain neoplasm [Unknown]
  - Eye movement disorder [Unknown]
  - Pyrexia [Unknown]
  - Headache [Unknown]
  - Cerebrovascular accident [Recovered/Resolved]
  - Muscular weakness [Unknown]
  - Nausea [Unknown]
  - Vomiting [Unknown]
  - Fatigue [Unknown]

NARRATIVE: CASE EVENT DATE: 20130710
